FAERS Safety Report 5626978-6 (Version None)
Quarter: 2008Q1

REPORT INFORMATION
  Report Type: 
  Country: None (occurrence: None)
  Receive Date: 20080130
  Receipt Date: 20070213
  Transmission Date: 20080703
  Serious: Yes (Other)
  Sender: FDA-Public Use
  Company Number: HQWYE672114FEB07

PATIENT
  Age: 65 Year
  Sex: Male

DRUGS (7)
  1. CORDARONE [Suspect]
     Indication: CARDIAC DISORDER
     Dosage: 200 MG 1X PER 1 DAY, ORAL
     Route: 048
     Dates: start: 20060101, end: 20061101
  2. CARDIZEM [Concomitant]
  3. HYZAAR [Concomitant]
  4. SYNTHROID [Concomitant]
  5. COUMADIN [Concomitant]
  6. LIPITOR [Concomitant]
  7. NEXIUM [Concomitant]

REACTIONS (1)
  - BLINDNESS [None]
